FAERS Safety Report 4681937-5 (Version None)
Quarter: 2005Q2

REPORT INFORMATION
  Report Type: 
  Country: None (occurrence: None)
  Receive Date: 20050602
  Receipt Date: 20050523
  Transmission Date: 20051028
  Serious: Yes (Death, Other)
  Sender: FDA-Public Use
  Company Number: 2005073617

PATIENT
  Age: 75 Year
  Sex: Male

DRUGS (8)
  1. CABERGOLINE [Suspect]
     Indication: PARKINSON'S DISEASE
     Dosage: 1.5 MG (1.5 MG, 1 IN 1 D), ORAL
     Route: 048
     Dates: start: 20040313, end: 20050429
  2. DROXIDOPA (DROXIDOPA) [Concomitant]
  3. NEODOPASOL (BENSERAZIDE HYDROCHLORIDE, LEVODOPA) [Concomitant]
  4. DEPAS (ETIZOLAM) [Concomitant]
  5. NAUZELIN (DOMPERIDONE) [Concomitant]
  6. LASIX [Concomitant]
  7. LANIRAPID (METILDIGOXIN) [Concomitant]
  8. WARFARIN SODIUM [Concomitant]

REACTIONS (1)
  - INTERSTITIAL LUNG DISEASE [None]
